FAERS Safety Report 23180011 (Version 1)
Quarter: 2023Q4

REPORT INFORMATION
  Report Type: Spontaneous
  Country: CN (occurrence: CN)
  Receive Date: 20231114
  Receipt Date: 20231114
  Transmission Date: 20240110
  Serious: Yes (Hospitalization)
  Sender: FDA-Public Use
  Company Number: None

PATIENT
  Age: 59 Year
  Sex: Female
  Weight: 49 kg

DRUGS (3)
  1. MANNITOL [Suspect]
     Active Substance: MANNITOL
     Indication: Cerebral haemorrhage
     Dosage: (DOSAGE FORM: INJECTION) 100 UNIT, ONE TIME IN ONE DAY
     Route: 041
     Dates: start: 20231023, end: 20231023
  2. PIRACETAM [Suspect]
     Active Substance: PIRACETAM
     Indication: Cerebral haemorrhage
     Dosage: 100 MILLILITERS (ML), ONE TIME IN ONE DAY
     Route: 041
     Dates: start: 20231023, end: 20231023
  3. DEXAMETHASONE SODIUM PHOSPHATE [Suspect]
     Active Substance: DEXAMETHASONE SODIUM PHOSPHATE
     Indication: Swelling face
     Dosage: 5 MILLIGRAMS (MG) AT AN UNSPECIFIED FREQUENCY
     Route: 042
     Dates: start: 20231023

REACTIONS (9)
  - Flushing [Recovered/Resolved]
  - Swelling face [Recovered/Resolved]
  - Skin induration [Recovered/Resolved]
  - Pruritus [Recovered/Resolved]
  - Rash [Recovered/Resolved]
  - Eyelid oedema [Unknown]
  - Chest discomfort [Recovered/Resolved]
  - Discomfort [Recovered/Resolved]
  - Dyspnoea [Recovering/Resolving]

NARRATIVE: CASE EVENT DATE: 20231023
